FAERS Safety Report 8851343 (Version 1)
Quarter: 2012Q4

REPORT INFORMATION
  Report Type: 
  Country: US (occurrence: US)
  Receive Date: 20121022
  Receipt Date: 20121022
  Transmission Date: 20130627
  Serious: No
  Sender: FDA-Public Use
  Company Number: US-009507513-1210USA003159

PATIENT
  Age: 3 Year
  Sex: Male

DRUGS (2)
  1. SINGULAIR [Suspect]
     Indication: PERTUSSIS
     Dosage: 4 mg, qd
     Route: 048
     Dates: start: 201010, end: 201103
  2. ADVAIR [Concomitant]

REACTIONS (2)
  - Ear infection [Recovered/Resolved]
  - Off label use [Unknown]
